FAERS Safety Report 5570848-9 (Version None)
Quarter: 2007Q4

REPORT INFORMATION
  Report Type: 
  Country: None (occurrence: None)
  Receive Date: 20071221
  Receipt Date: 20071212
  Transmission Date: 20080405
  Serious: Yes (Other)
  Sender: FDA-Public Use
  Company Number: US-AMGEN-US256596

PATIENT
  Sex: Female

DRUGS (4)
  1. ENBREL [Suspect]
     Indication: RHEUMATOID ARTHRITIS
     Route: 058
     Dates: start: 19991115
  2. METHOTREXATE [Concomitant]
     Route: 058
     Dates: start: 19990503
  3. LISINOPRIL [Concomitant]
     Dates: start: 20061022
  4. HYDROCHLOROTHIAZIDE [Concomitant]
     Dates: start: 20061022

REACTIONS (10)
  - ARTHRALGIA [None]
  - CHEST DISCOMFORT [None]
  - FATIGUE [None]
  - HEART RATE INCREASED [None]
  - HEPATIC ENZYME INCREASED [None]
  - HYPERTENSION [None]
  - INJECTION SITE PAIN [None]
  - JOINT STIFFNESS [None]
  - OXYGEN SATURATION DECREASED [None]
  - RHEUMATOID ARTHRITIS [None]
